FAERS Safety Report 10716545 (Version 1)
Quarter: 2015Q1

REPORT INFORMATION
  Report Type: Spontaneous
  Country: US (occurrence: None)
  Receive Date: 20150115
  Receipt Date: 20150115
  Transmission Date: 20150721
  Serious: Yes (Hospitalization)
  Sender: FDA-Public Use
  Company Number: None

PATIENT
  Age: 60 Year
  Sex: Female
  Weight: 69.5 kg

DRUGS (6)
  1. DOXORUBICIN HYDROCHLORIDE. [Suspect]
     Active Substance: DOXORUBICIN HYDROCHLORIDE
     Dates: end: 20130804
  2. ETOPOSIDE (VP-16) [Suspect]
     Active Substance: ETOPOSIDE
     Dates: end: 20130804
  3. PREDNISONE. [Suspect]
     Active Substance: PREDNISONE
     Dates: end: 20130805
  4. RITUXIMAB (MOAB C2B8 ANTI CD20, CHIMERIC) [Suspect]
     Active Substance: RITUXIMAB
     Dates: end: 20130731
  5. VINCRISTINE SULFATE. [Suspect]
     Active Substance: VINCRISTINE SULFATE
     Dates: end: 20130803
  6. CYCLOPHOSPHAMIDE. [Suspect]
     Active Substance: CYCLOPHOSPHAMIDE
     Dates: end: 20130805

REACTIONS (17)
  - Leukocytosis [None]
  - Abdominal pain [None]
  - Constipation [None]
  - Fatigue [None]
  - Electrolyte imbalance [None]
  - Metabolic alkalosis [None]
  - Mental status changes [None]
  - Fluid overload [None]
  - Hiccups [None]
  - Electrocardiogram QT prolonged [None]
  - Duodenal ulcer [None]
  - Ileus [None]
  - Anaemia [None]
  - Pancreatitis [None]
  - Tachycardia [None]
  - Nausea [None]
  - Vomiting [None]

NARRATIVE: CASE EVENT DATE: 20130903
